FAERS Safety Report 6169409-2 (Version None)
Quarter: 2009Q2

REPORT INFORMATION
  Report Type: 
  Country: None (occurrence: None)
  Receive Date: 20090424
  Receipt Date: 20090414
  Transmission Date: 20091009
  Serious: Yes (Congenital Anomaly)
  Sender: FDA-Public Use
  Company Number: GXKR2009DK04766

PATIENT

DRUGS (1)
  1. FLUOXETINE [Suspect]
     Dosage: QD, TRANSPLACENTAL
     Route: 064
     Dates: start: 20070101, end: 20080901

REACTIONS (2)
  - CONGENITAL MULTIPLEX ARTHROGRYPOSIS [None]
  - MATERNAL DRUGS AFFECTING FOETUS [None]
